FAERS Safety Report 5506651-5 (Version None)
Quarter: 2007Q4

REPORT INFORMATION
  Report Type: 
  Country: None (occurrence: None)
  Receive Date: 20071105
  Receipt Date: 20071022
  Transmission Date: 20080405
  Serious: Yes (Hospitalization)
  Sender: FDA-Public Use
  Company Number: US-ROCHE-457756

PATIENT
  Age: 68 Year
  Sex: Female
  Weight: 48.5 kg

DRUGS (6)
  1. PEG-INTERFERON ALFA 2A (RO 25-8310) [Suspect]
     Dosage: FORM REPORTED AS INJECTABLE SOLUTION
     Route: 058
     Dates: start: 20051103, end: 20060711
  2. RIBAVIRIN [Suspect]
     Route: 048
     Dates: start: 20051103, end: 20060711
  3. FOSAMAX [Concomitant]
     Indication: OSTEOPENIA
     Dosage: REPORTED AS DAILY.
     Route: 048
     Dates: start: 19990101
  4. CALCIUM [Concomitant]
     Indication: OSTEOPENIA
     Route: 048
     Dates: start: 20000101
  5. SYNTHROID [Concomitant]
     Route: 048
     Dates: start: 20060505
  6. PROCRIT [Concomitant]
     Route: 058
     Dates: start: 20060211

REACTIONS (3)
  - ATRIAL FIBRILLATION [None]
  - CEREBROVASCULAR ACCIDENT [None]
  - PNEUMONIA [None]
